FAERS Safety Report 22816092 (Version 2)
Quarter: 2024Q4

REPORT INFORMATION
  Report Type: Report from Study
  Country: US (occurrence: US)
  Receive Date: 20230811
  Receipt Date: 20241118
  Transmission Date: 20250115
  Serious: Yes (Other)
  Sender: GENMAB
  Company Number: US-GENMAB-2023-01381

PATIENT
  Age: 73 Year
  Sex: Male

DRUGS (1)
  1. EPKINLY [Suspect]
     Active Substance: EPCORITAMAB-BYSP
     Indication: Diffuse large B-cell lymphoma
     Dosage: UNK
     Route: 065
     Dates: start: 20230612, end: 20230713

REACTIONS (1)
  - Diffuse large B-cell lymphoma [Unknown]
